FAERS Safety Report 9168548 (Version 2)
Quarter: 2013Q2

REPORT INFORMATION
  Report Type: Spontaneous
  Country: JP (occurrence: JP)
  Receive Date: 20130318
  Receipt Date: 20130603
  Transmission Date: 20140414
  Serious: Yes (Hospitalization)
  Sender: FDA-Public Use
  Company Number: JP-ELI_LILLY_AND_COMPANY-JP201301003042

PATIENT
  Age: 56 Year
  Sex: Male
  Weight: 63 kg

DRUGS (6)
  1. GEMZAR [Suspect]
     Indication: BLADDER TRANSITIONAL CELL CARCINOMA STAGE IV
     Dosage: 1000 MG/M2, DAY 1,8,15 OF EACH 28 DAY CYCLE
     Route: 042
     Dates: start: 20120821, end: 20121218
  2. RANDA [Concomitant]
     Indication: BLADDER TRANSITIONAL CELL CARCINOMA STAGE IV
     Dosage: 70 MG/M2, DAY 2 OF EACH 28 DAY CYCLE
     Route: 042
     Dates: start: 20120822, end: 20121219
  3. DECADRAN [Concomitant]
     Indication: NAUSEA
     Dosage: 6.6 MG, DAY 1,2,8,15, OF EACH 28 DAY CYCLE
     Route: 042
     Dates: start: 20120821, end: 20130104
  4. GRANISETRON [Concomitant]
     Indication: NAUSEA
  5. EMEND [Concomitant]
     Indication: NAUSEA
     Dosage: DAY 2 OF EACH 28 DAY CYCLE
     Route: 048
     Dates: start: 20120822, end: 20121220
  6. ALOXI [Concomitant]
     Indication: NAUSEA
     Dosage: 0.75 MG, DAY 2 OF EACH 28 DAY CYCLE
     Route: 042
     Dates: start: 20120822, end: 20121220

REACTIONS (4)
  - Pulmonary embolism [Recovered/Resolved]
  - Deep vein thrombosis [Recovering/Resolving]
  - Drug eruption [Unknown]
  - Nausea [Unknown]
